FAERS Safety Report 5470740-4 (Version None)
Quarter: 2007Q3

REPORT INFORMATION
  Report Type: 
  Country: None (occurrence: None)
  Receive Date: 20070928
  Receipt Date: 20070918
  Transmission Date: 20080115
  Serious: Yes (Death)
  Sender: FDA-Public Use
  Company Number: ES-JNJFOC-20070903652

PATIENT
  Age: 74 Year
  Sex: Male
  Weight: 60 kg

DRUGS (10)
  1. DURAGESIC-100 [Suspect]
     Indication: CANCER PAIN
     Route: 062
  2. HALOPERIDOL [Concomitant]
     Indication: NAUSEA
     Route: 048
  3. RABEPRAZOLE SODIUM [Concomitant]
     Indication: GASTROINTESTINAL DISORDER THERAPY
     Route: 048
  4. CELEBREX [Concomitant]
     Indication: RHEUMATOID ARTHRITIS
     Route: 048
  5. DACORTIN [Concomitant]
     Indication: RHEUMATOID ARTHRITIS
     Route: 048
  6. DISTRANEURINE [Concomitant]
     Indication: DRUG USE FOR UNKNOWN INDICATION
     Route: 065
  7. MEGEFREN [Concomitant]
     Indication: ASTHENIA
     Route: 048
  8. CARDIL [Concomitant]
     Indication: HYPERCHOLESTEROLAEMIA
     Route: 065
  9. OPONAF [Concomitant]
     Indication: CONSTIPATION
     Route: 065
  10. DILUTOL [Concomitant]
     Indication: DRUG USE FOR UNKNOWN INDICATION
     Route: 065

REACTIONS (2)
  - APPLICATION SITE ERYTHEMA [None]
  - MALIGNANT NEOPLASM PROGRESSION [None]
